FAERS Safety Report 6087754-6 (Version None)
Quarter: 2009Q1

REPORT INFORMATION
  Report Type: 
  Country: None (occurrence: None)
  Receive Date: 20090223
  Receipt Date: 20090213
  Transmission Date: 20090719
  Serious: Yes (Hospitalization)
  Sender: FDA-Public Use
  Company Number: DE-ABBOTT-08P-062-0490714-00

PATIENT
  Sex: Female
  Weight: 40 kg

DRUGS (2)
  1. HUMIRA [Suspect]
     Indication: CROHN'S DISEASE
     Route: 058
     Dates: start: 20080428, end: 20081001
  2. HUMIRA [Suspect]
     Route: 058
     Dates: start: 20081110

REACTIONS (3)
  - ANAL FISTULA [None]
  - CROHN'S DISEASE [None]
  - PERIRECTAL ABSCESS [None]
